FAERS Safety Report 19814472 (Version 5)
Quarter: 2022Q2

REPORT INFORMATION
  Report Type: Spontaneous
  Country: US (occurrence: US)
  Receive Date: 20210909
  Receipt Date: 20220623
  Transmission Date: 20220721
  Serious: Yes (Other)
  Sender: FDA-Public Use
  Company Number: US-ORGANON-O2109USA000662

PATIENT
  Age: 74 Year
  Sex: Male

DRUGS (7)
  1. ASMANEX HFA [Suspect]
     Active Substance: MOMETASONE FUROATE
     Indication: Asthma
     Dosage: UNK
  2. ASMANEX HFA [Suspect]
     Active Substance: MOMETASONE FUROATE
     Dosage: 2 SPRAYS TWICE DAILY
     Dates: start: 20210906
  3. ASMANEX HFA [Suspect]
     Active Substance: MOMETASONE FUROATE
     Indication: Asthma
     Dosage: 2 SPRAYS TWICE DAILY
  4. ASMANEX HFA [Suspect]
     Active Substance: MOMETASONE FUROATE
     Indication: Wheezing
  5. DULERA [Suspect]
     Active Substance: FORMOTEROL FUMARATE DIHYDRATE\MOMETASONE FUROATE
     Dosage: UNK, BID
  6. CEPHADAR [Concomitant]
     Dosage: UNK
  7. TENORMIN [Concomitant]
     Active Substance: ATENOLOL
     Dosage: UNK

REACTIONS (9)
  - Arrhythmia [Unknown]
  - Asthma [Unknown]
  - Sinusitis [Recovered/Resolved]
  - Device malfunction [Unknown]
  - Poor quality device used [Unknown]
  - Incorrect dose administered [Unknown]
  - Circumstance or information capable of leading to medication error [Unknown]
  - Expired device used [Unknown]
  - Product prescribing issue [Unknown]

NARRATIVE: CASE EVENT DATE: 20210101
